FAERS Safety Report 15864943 (Version 1)
Quarter: 2019Q1

REPORT INFORMATION
  Report Type: Spontaneous
  Country: US (occurrence: US)
  Receive Date: 20190124
  Receipt Date: 20190124
  Transmission Date: 20190417
  Serious: No
  Sender: FDA-Public Use
  Company Number: US-MYLANLABS-2019M1003217

PATIENT
  Sex: Female
  Weight: 72 kg

DRUGS (4)
  1. CARVEDILOL TABLETS, USP [Suspect]
     Active Substance: CARVEDILOL
     Indication: EJECTION FRACTION
  2. CARVEDILOL TABLETS, USP [Suspect]
     Active Substance: CARVEDILOL
     Indication: CARDIOMYOPATHY
     Dosage: 1 DOSAGE FORM
     Route: 048
     Dates: end: 201811
  3. LEVOTHYROXINE SODIUM TABLETS, USP [Suspect]
     Active Substance: LEVOTHYROXINE SODIUM
     Indication: HYPOTHYROIDISM
     Dosage: 1 DOSAGE FORM
     Route: 048
  4. LEVOTHYROXINE SODIUM TABLETS, USP [Suspect]
     Active Substance: LEVOTHYROXINE SODIUM
     Indication: HYPOTHYROIDISM
     Dosage: 1 DOSAGE FORM
     Route: 048
     Dates: end: 201811

REACTIONS (5)
  - Confusional state [Recovered/Resolved]
  - Insomnia [Unknown]
  - Muscle twitching [Unknown]
  - Off label use [Unknown]
  - Headache [Recovered/Resolved]
